FAERS Safety Report 8767553 (Version 2)
Quarter: 2012Q4

REPORT INFORMATION
  Report Type: 
  Country: US (occurrence: US)
  Receive Date: 20120903
  Receipt Date: 20121005
  Transmission Date: 20130627
  Serious: Yes (Other)
  Sender: FDA-Public Use
  Company Number: PHHY2012US074159

PATIENT
  Age: 76 Year
  Sex: Male

DRUGS (2)
  1. BUFFERIN EXTRA STRENGTH [Suspect]
     Indication: PAIN
     Dosage: 6 DF, daily
     Route: 048
     Dates: start: 1950, end: 201205
  2. CELEBREX [Concomitant]
     Dates: start: 2009

REACTIONS (8)
  - Prostate cancer [Not Recovered/Not Resolved]
  - Carotid artery occlusion [Not Recovered/Not Resolved]
  - Tongue cancer metastatic [Not Recovered/Not Resolved]
  - Tongue dysplasia [Not Recovered/Not Resolved]
  - Lip swelling [Not Recovered/Not Resolved]
  - Rash [Unknown]
  - Incorrect drug administration rate [Unknown]
  - Incorrect drug administration duration [Unknown]
